FAERS Safety Report 18591469 (Version 2)
Quarter: 2020Q4

REPORT INFORMATION
  Report Type: Spontaneous
  Country: TN (occurrence: TN)
  Receive Date: 20201208
  Receipt Date: 20201216
  Transmission Date: 20210114
  Serious: Yes (Life-Threatening, Other)
  Sender: FDA-Public Use
  Company Number: TN-VALIDUS PHARMACEUTICALS LLC-TN-2020VAL001023

PATIENT

DRUGS (5)
  1. NIFEDIPINE. [Concomitant]
     Active Substance: NIFEDIPINE
     Indication: PRODUCT USED FOR UNKNOWN INDICATION
     Dosage: UNK
  2. BUMETANIDE. [Suspect]
     Active Substance: BUMETANIDE
     Indication: PRODUCT USED FOR UNKNOWN INDICATION
     Dosage: UNK
     Route: 065
  3. ALLOPURINOL. [Concomitant]
     Active Substance: ALLOPURINOL
     Indication: PRODUCT USED FOR UNKNOWN INDICATION
     Dosage: UNK
  4. CAPTOPRIL. [Concomitant]
     Active Substance: CAPTOPRIL
     Indication: PRODUCT USED FOR UNKNOWN INDICATION
     Dosage: UNK
  5. FUROSEMIDE. [Suspect]
     Active Substance: FUROSEMIDE
     Indication: MULTIPLE DRUG THERAPY
     Dosage: UNK
     Route: 065

REACTIONS (18)
  - Eosinophilia [Recovered/Resolved]
  - Dehydration [Recovered/Resolved]
  - Therapeutic product cross-reactivity [Recovered/Resolved]
  - Rash maculo-papular [Recovered/Resolved]
  - Face oedema [Recovered/Resolved]
  - Interstitial lung disease [Recovered/Resolved]
  - Eczema [Recovered/Resolved]
  - Lymphocytic infiltration [Recovered/Resolved]
  - Condition aggravated [Recovered/Resolved]
  - Skin oedema [Recovered/Resolved]
  - Creatinine renal clearance decreased [Recovered/Resolved]
  - Disease recurrence [Recovered/Resolved]
  - Renal disorder [Recovered/Resolved]
  - Rash papular [Recovered/Resolved]
  - Drug reaction with eosinophilia and systemic symptoms [Recovered/Resolved]
  - Pruritus [Recovered/Resolved]
  - Pyrexia [Recovered/Resolved]
  - Blood lactate dehydrogenase increased [Recovered/Resolved]
